FAERS Safety Report 15124070 (Version 1)
Quarter: 2018Q3

REPORT INFORMATION
  Report Type: Spontaneous
  Country: US (occurrence: US)
  Receive Date: 20180710
  Receipt Date: 20180710
  Transmission Date: 20181010
  Serious: Yes (Hospitalization)
  Sender: FDA-Public Use
  Company Number: US-TEVA-790881USA

PATIENT
  Sex: Female

DRUGS (7)
  1. TOPAMAX [Concomitant]
     Active Substance: TOPIRAMATE
     Indication: PAIN
     Dosage: 50 MILLIGRAM DAILY;
  2. RISPERIDONE. [Suspect]
     Active Substance: RISPERIDONE
     Indication: WHITE BLOOD CELL DISORDER
     Dosage: LOW DOSE
     Dates: end: 2014
  3. BENADRYL [Suspect]
     Active Substance: DIPHENHYDRAMINE HYDROCHLORIDE
     Indication: HYPERSENSITIVITY
     Dosage: AS NEEDED
     Route: 065
     Dates: end: 2014
  4. TYLENOL [Suspect]
     Active Substance: ACETAMINOPHEN
     Dosage: REGULAR DOSE
     Route: 065
     Dates: end: 2014
  5. ZYRTEC [Suspect]
     Active Substance: CETIRIZINE HYDROCHLORIDE
     Indication: HYPERSENSITIVITY
     Route: 065
     Dates: end: 2014
  6. QUERCETIN [Concomitant]
     Active Substance: QUERCETIN
     Indication: WHITE BLOOD CELL DISORDER
  7. PRISTIQ EXTENDED?RELEASE [Concomitant]
     Active Substance: DESVENLAFAXINE SUCCINATE

REACTIONS (3)
  - Product use in unapproved indication [Unknown]
  - Hypersensitivity [Recovered/Resolved]
  - Product substitution issue [Unknown]

NARRATIVE: CASE EVENT DATE: 2014
